FAERS Safety Report 4790207-6 (Version None)
Quarter: 2005Q4

REPORT INFORMATION
  Report Type: 
  Country: None (occurrence: None)
  Receive Date: 20051006
  Receipt Date: 20050928
  Transmission Date: 20060501
  Serious: Yes (Hospitalization)
  Sender: FDA-Public Use
  Company Number: FR-ROCHE-419834

PATIENT
  Age: 53 Year
  Sex: Female
  Weight: 73.6 kg

DRUGS (14)
  1. DACLIZUMAB [Suspect]
     Dosage: GIVEN ON DAY 0 ONLY AS PER PROTOCOL.
     Route: 042
     Dates: start: 20041227, end: 20041227
  2. DACLIZUMAB [Suspect]
     Dosage: GIVEN ON DAY 14 ONLY AS PER PROTOCOL.
     Route: 042
     Dates: start: 20050110, end: 20050110
  3. MYCOPHENOLATE MOFETIL [Suspect]
     Route: 048
     Dates: start: 20041227
  4. CICLOSPORIN [Suspect]
     Dosage: FREQUENCY REPORTED AS TWICE.
     Route: 048
     Dates: start: 20041227
  5. CICLOSPORIN [Suspect]
     Route: 048
  6. STEROIDS NOS [Suspect]
     Dosage: DOSING FREQUENCY WAS REPORTED AS 1.
     Route: 048
     Dates: start: 20041227
  7. STEROIDS NOS [Suspect]
     Route: 048
  8. MOPRAL 20 [Concomitant]
     Dates: start: 20041227
  9. FUNGIZONE [Concomitant]
     Dates: start: 20041227
  10. ELISOR [Concomitant]
     Dates: start: 20041227
  11. APROVEL [Concomitant]
     Dates: start: 20050327
  12. SECTRAL [Concomitant]
     Dates: start: 20050407
  13. TEMESTA [Concomitant]
     Dates: start: 20050410
  14. XANAX [Concomitant]
     Dates: start: 20050122

REACTIONS (2)
  - ANXIETY [None]
  - VIRAL INFECTION [None]
